FAERS Safety Report 20884308 (Version 1)
Quarter: 2022Q2

REPORT INFORMATION
  Report Type: Spontaneous
  Country: FR (occurrence: FR)
  Receive Date: 20220527
  Receipt Date: 20220527
  Transmission Date: 20220721
  Serious: Yes (Other)
  Sender: FDA-Public Use
  Company Number: None

PATIENT
  Age: 76 Year
  Sex: Male
  Weight: 97 kg

DRUGS (2)
  1. VARENICLINE TARTRATE [Suspect]
     Active Substance: VARENICLINE TARTRATE
     Dosage: 2 MG, 1X/DAY (1 MG IN THE MORNING 1 MG IN THE EVENING)
     Route: 048
     Dates: start: 20160921, end: 20210727
  2. NICOPASS [Suspect]
     Active Substance: NICOTINE
     Indication: Ex-tobacco user
     Dosage: 1.5 MG

REACTIONS (3)
  - Dependence [Not Recovered/Not Resolved]
  - Product availability issue [Not Recovered/Not Resolved]
  - Drug ineffective [Not Recovered/Not Resolved]

NARRATIVE: CASE EVENT DATE: 20210727
